FAERS Safety Report 25392775 (Version 2)
Quarter: 2025Q3

REPORT INFORMATION
  Report Type: Report from Study
  Country: US (occurrence: US)
  Receive Date: 20250603
  Receipt Date: 20250803
  Transmission Date: 20251020
  Serious: Yes (Other)
  Sender: ALEXION PHARMACEUTICALS
  Company Number: US-AstraZeneca-CH-00880883A

PATIENT
  Sex: Female
  Weight: 37.642 kg

DRUGS (1)
  1. ULTOMIRIS [Suspect]
     Active Substance: RAVULIZUMAB-CWVZ
     Indication: Atypical haemolytic uraemic syndrome
     Route: 065

REACTIONS (11)
  - Pneumonia [Unknown]
  - Fracture [Unknown]
  - Ligament sprain [Unknown]
  - Limb injury [Unknown]
  - Joint injury [Unknown]
  - Weight decreased [Unknown]
  - Vomiting [Unknown]
  - Asthenia [Unknown]
  - Pain [Unknown]
  - Infusion site pain [Unknown]
  - Device occlusion [Unknown]
